FAERS Safety Report 6906946-4 (Version None)
Quarter: 2010Q3

REPORT INFORMATION
  Report Type: 
  Country: None (occurrence: None)
  Receive Date: 20100804
  Receipt Date: 20100726
  Transmission Date: 20110219
  Serious: Yes (Hospitalization)
  Sender: FDA-Public Use
  Company Number: US-WYE-H15579510

PATIENT
  Sex: Female
  Weight: 87.17 kg

DRUGS (5)
  1. PRISTIQ [Suspect]
     Indication: DEPRESSION
     Dates: start: 20100430, end: 20100610
  2. XANAX [Concomitant]
     Indication: ANXIETY
     Dosage: 1 MG PRN
  3. AMBIEN [Concomitant]
     Indication: INSOMNIA
     Dosage: 10 MG Q HS
  4. FLUOXETINE HCL [Concomitant]
     Indication: DEPRESSION
  5. MINOCYCLINE HCL [Concomitant]
     Indication: ACNE

REACTIONS (4)
  - ALANINE AMINOTRANSFERASE INCREASED [None]
  - ASPARTATE AMINOTRANSFERASE INCREASED [None]
  - DRUG WITHDRAWAL SYNDROME [None]
  - SUICIDAL BEHAVIOUR [None]
